FAERS Safety Report 17646905 (Version 2)
Quarter: 2020Q2

REPORT INFORMATION
  Report Type: Spontaneous
  Country: US (occurrence: US)
  Receive Date: 20200409
  Receipt Date: 20200409
  Transmission Date: 20200713
  Serious: Yes (Hospitalization, Other)
  Sender: FDA-Public Use
  Company Number: US-SHIRE-US202012717

PATIENT
  Sex: Female

DRUGS (1)
  1. TAKHZYRO [Suspect]
     Active Substance: LANADELUMAB-FLYO
     Indication: HEREDITARY ANGIOEDEMA
     Route: 058

REACTIONS (6)
  - Cerebrospinal fluid circulation disorder [Unknown]
  - Joint lock [Unknown]
  - Muscle twitching [Unknown]
  - Seizure [Unknown]
  - Hereditary angioedema [Unknown]
  - Tremor [Unknown]
